FAERS Safety Report 7610440-5 (Version None)
Quarter: 2011Q3

REPORT INFORMATION
  Report Type: 
  Country: None (occurrence: None)
  Receive Date: 20110707
  Receipt Date: 20110622
  Transmission Date: 20111222
  Serious: Yes (Hospitalization)
  Sender: FDA-Public Use
  Company Number: 1000021878

PATIENT
  Age: 92 Year
  Sex: Female

DRUGS (11)
  1. ARIXTRA [Suspect]
     Indication: ATRIAL FIBRILLATION
     Dosage: 7.5 MG (7.5 MG, 1 IN 1 D), SUBCUTANEOUS
     Route: 058
     Dates: start: 20110401, end: 20110512
  2. PERINDOPRIL ERBUMINE [Concomitant]
  3. CITALOPRAM HYDROBROMIDE [Suspect]
     Dosage: 20 MG (20 MG, 1 IN 1 D), ORAL
     Route: 048
  4. ASPIRIN [Suspect]
     Dosage: 75 MG (75 MG, 1 IN 1 D), ORAL
     Route: 048
     Dates: end: 20110512
  5. LASIX [Concomitant]
  6. INIPOMP (PANTOPRAZOLE) [Concomitant]
  7. FLUTICASONE PROPIONATE/SALMETEROL [Suspect]
  8. DESLORATADINE [Concomitant]
  9. ARICEPT [Concomitant]
  10. CORDARONE [Suspect]
     Indication: ATRIAL FIBRILLATION
     Dosage: 200 MG (200 MG, 1 IN 1 D), ORAL
     Route: 048
     Dates: end: 20110512
  11. SINGULAIR [Concomitant]

REACTIONS (2)
  - HAEMATOMA [None]
  - NORMOCHROMIC NORMOCYTIC ANAEMIA [None]
